FAERS Safety Report 4348650-5 (Version None)
Quarter: 2004Q2

REPORT INFORMATION
  Report Type: 
  Country: None (occurrence: None)
  Receive Date: 20040423
  Receipt Date: 20040413
  Transmission Date: 20050107
  Serious: Yes (Life-Threatening)
  Sender: FDA-Public Use
  Company Number: FR-JNJFOC-20040402710

PATIENT
  Age: 9 Month
  Sex: Male
  Weight: 5.8 kg

DRUGS (2)
  1. TOPIRAMATE [Suspect]
     Indication: EPILEPSY
     Dosage: 25 MG, IN 1 DAY, ORAL
     Route: 048
     Dates: start: 20031106, end: 20040303
  2. STIRIPENTOL (STIRIPENTOL) [Concomitant]

REACTIONS (4)
  - METABOLIC ACIDOSIS [None]
  - RENAL FAILURE ACUTE [None]
  - TACHYPNOEA [None]
  - VIRAL INFECTION [None]
